FAERS Safety Report 15280344 (Version 5)
Quarter: 2019Q3

REPORT INFORMATION
  Report Type: Report from Study
  Country: US (occurrence: US)
  Receive Date: 20180815
  Receipt Date: 20190827
  Transmission Date: 20191004
  Serious: No
  Sender: FDA-Public Use
  Company Number: PHEH2018US033366

PATIENT
  Sex: Female

DRUGS (1)
  1. COSENTYX [Suspect]
     Active Substance: SECUKINUMAB
     Indication: PSORIASIS
     Dosage: 300 MG, QMO
     Route: 058

REACTIONS (10)
  - Pain in extremity [Unknown]
  - Exercise tolerance decreased [Unknown]
  - Musculoskeletal stiffness [Unknown]
  - Psoriasis [Unknown]
  - Alopecia [Unknown]
  - Depression [Unknown]
  - Peripheral swelling [Unknown]
  - Arthralgia [Unknown]
  - Pruritus [Unknown]
  - Pain [Not Recovered/Not Resolved]
